FAERS Safety Report 17691510 (Version 1)
Quarter: 2020Q2

REPORT INFORMATION
  Report Type: Spontaneous
  Country: US (occurrence: US)
  Receive Date: 20200420
  Receipt Date: 20200420
  Transmission Date: 20200714
  Serious: Yes (Other)
  Sender: FDA-Public Use
  Company Number: None

PATIENT
  Age: 51 Year
  Sex: Female
  Weight: 61.69 kg

DRUGS (1)
  1. GLASSIA [Suspect]
     Active Substance: .ALPHA.1-PROTEINASE INHIBITOR HUMAN
     Indication: ALPHA-1 ANTITRYPSIN DEFICIENCY
     Route: 041
     Dates: start: 20200418, end: 20200420

REACTIONS (6)
  - Infusion related reaction [None]
  - Dyspnoea [None]
  - Paraesthesia [None]
  - Asthenia [None]
  - Inflammation [None]
  - Dizziness [None]

NARRATIVE: CASE EVENT DATE: 20200418
